FAERS Safety Report 11491996 (Version 1)
Quarter: 2015Q3

REPORT INFORMATION
  Report Type: Spontaneous
  Country: US (occurrence: None)
  Receive Date: 20150910
  Receipt Date: 20150910
  Transmission Date: 20151125
  Serious: Yes (Hospitalization, Other)
  Sender: FDA-Public Use
  Company Number: US-MDT-ADR-2015-01761

PATIENT
  Age: 42 Year
  Sex: Male

DRUGS (2)
  1. BACLOFEN INTRATHECAL 500MCG/ML [Suspect]
     Active Substance: BACLOFEN
     Dosage: 75.19MCG/DAY
  2. DILAUDID [Suspect]
     Active Substance: HYDROMORPHONE HYDROCHLORIDE
     Dosage: 0.3008MG/DAY

REACTIONS (12)
  - Fall [None]
  - Pain [None]
  - Back pain [None]
  - Pain in extremity [None]
  - Medical device site pain [None]
  - Gait disturbance [None]
  - Arthralgia [None]
  - Radicular pain [None]
  - Spinal pain [None]
  - Neuralgia [None]
  - Spinal fracture [None]
  - No therapeutic response [None]
